FAERS Safety Report 22344197 (Version 1)
Quarter: 2023Q2

REPORT INFORMATION
  Report Type: Spontaneous
  Country: PL (occurrence: PL)
  Receive Date: 20230519
  Receipt Date: 20230519
  Transmission Date: 20230721
  Serious: Yes (Other)
  Sender: FDA-Public Use
  Company Number: PL-SUN PHARMACEUTICAL INDUSTRIES LTD-2023R1-388812

PATIENT
  Age: 32 Year
  Sex: Male

DRUGS (1)
  1. SERTRALINE [Suspect]
     Active Substance: SERTRALINE HYDROCHLORIDE
     Indication: Depression
     Dosage: 150 MILLIGRAM, DAILY
     Route: 065

REACTIONS (5)
  - Therapeutic response decreased [Unknown]
  - Psychomotor retardation [Unknown]
  - Depressed mood [Unknown]
  - Apathy [Unknown]
  - Hypersomnia [Unknown]
